FAERS Safety Report 9066639 (Version 1)
Quarter: 2013Q1

REPORT INFORMATION
  Report Type: Report from Study
  Country: US (occurrence: US)
  Receive Date: 20130131
  Receipt Date: 20130131
  Transmission Date: 20140127
  Serious: No
  Sender: FDA-Public Use
  Company Number: US-ABBOTT-12P-163-1015865-00

PATIENT
  Age: 31 Year
  Sex: Female

DRUGS (5)
  1. HUMIRA [Suspect]
     Indication: ANKYLOSING SPONDYLITIS
     Dates: start: 201210
  2. NUVARING [Concomitant]
     Indication: PRODUCT USED FOR UNKNOWN INDICATION
  3. OMNARIS [Concomitant]
     Indication: HYPERSENSITIVITY
     Dosage: NASAL SPRAY
  4. TRAMADOL [Concomitant]
     Indication: BACK PAIN
     Dosage: EXTENDED-RELEASE, DAILY
  5. VYVANSE [Concomitant]
     Indication: PRODUCT USED FOR UNKNOWN INDICATION

REACTIONS (2)
  - Inappropriate schedule of drug administration [Unknown]
  - Injection site pain [Unknown]
